FAERS Safety Report 6314740-0 (Version None)
Quarter: 2009Q3

REPORT INFORMATION
  Report Type: 
  Country: None (occurrence: None)
  Receive Date: 20090817
  Receipt Date: 20090806
  Transmission Date: 20100115
  Serious: Yes (Hospitalization)
  Sender: FDA-Public Use
  Company Number: ENT 2009-0094

PATIENT
  Age: 59 Year
  Sex: Female

DRUGS (14)
  1. COMTAN [Suspect]
     Indication: DRUG EFFECT DECREASED
     Dosage: ORAL; 100MG/D ORAL; 200MG/D ORAL
     Route: 048
     Dates: end: 20080403
  2. COMTAN [Suspect]
     Indication: PARKINSON'S DISEASE
     Dosage: ORAL; 100MG/D ORAL; 200MG/D ORAL
     Route: 048
     Dates: end: 20080403
  3. COMTAN [Suspect]
     Indication: DRUG EFFECT DECREASED
     Dosage: ORAL; 100MG/D ORAL; 200MG/D ORAL
     Route: 048
     Dates: start: 20080403, end: 20080501
  4. COMTAN [Suspect]
     Indication: PARKINSON'S DISEASE
     Dosage: ORAL; 100MG/D ORAL; 200MG/D ORAL
     Route: 048
     Dates: start: 20080403, end: 20080501
  5. COMTAN [Suspect]
     Indication: DRUG EFFECT DECREASED
     Dosage: ORAL; 100MG/D ORAL; 200MG/D ORAL
     Route: 048
     Dates: start: 20080502, end: 20080605
  6. COMTAN [Suspect]
     Indication: PARKINSON'S DISEASE
     Dosage: ORAL; 100MG/D ORAL; 200MG/D ORAL
     Route: 048
     Dates: start: 20080502, end: 20080605
  7. COMTAN [Suspect]
     Indication: DRUG EFFECT DECREASED
     Dosage: ORAL; 100MG/D ORAL; 200MG/D ORAL
     Route: 048
     Dates: start: 20080606, end: 20080630
  8. COMTAN [Suspect]
     Indication: PARKINSON'S DISEASE
     Dosage: ORAL; 100MG/D ORAL; 200MG/D ORAL
     Route: 048
     Dates: start: 20080606, end: 20080630
  9. CARBIDOPA AND LEVODOPA [Concomitant]
  10. PRAMIPEXOLE DIHYDROCHLORIDE [Concomitant]
  11. SYMMETREL [Concomitant]
  12. CABASER [Concomitant]
  13. CLARITIN [Concomitant]
  14. YOKUKAN-SAN [Concomitant]

REACTIONS (6)
  - BLOOD CREATINE PHOSPHOKINASE INCREASED [None]
  - BLOOD CREATININE INCREASED [None]
  - BLOOD UREA INCREASED [None]
  - CONDITION AGGRAVATED [None]
  - DYSKINESIA [None]
  - PYREXIA [None]
